FAERS Safety Report 25382778 (Version 1)
Quarter: 2025Q2

REPORT INFORMATION
  Report Type: Spontaneous
  Country: US (occurrence: US)
  Receive Date: 20250602
  Receipt Date: 20250602
  Transmission Date: 20250717
  Serious: No
  Sender: ELI LILLY AND COMPANY
  Company Number: US-ELI_LILLY_AND_COMPANY-US202505021437

PATIENT
  Age: 86 Year
  Sex: Female

DRUGS (2)
  1. HUMALOG MIX75/25 [Suspect]
     Active Substance: INSULIN LISPRO
     Indication: Product used for unknown indication
     Route: 065
  2. NOVOLOG [Concomitant]
     Active Substance: INSULIN ASPART
     Indication: Product used for unknown indication

REACTIONS (6)
  - Fall [Unknown]
  - Contusion [Recovered/Resolved]
  - Shoulder fracture [Recovering/Resolving]
  - Mydriasis [Unknown]
  - Craniofacial fracture [Unknown]
  - Incorrect dose administered [Unknown]
